FAERS Safety Report 10360869 (Version 3)
Quarter: 2015Q1

REPORT INFORMATION
  Report Type: Spontaneous
  Country: US (occurrence: US)
  Receive Date: 20140804
  Receipt Date: 20150112
  Transmission Date: 20150720
  Serious: Yes (Hospitalization, Other)
  Sender: FDA-Public Use
  Company Number: US-DSJP-DSU-2014-116842

PATIENT

DRUGS (7)
  1. BENICAR [Suspect]
     Active Substance: OLMESARTAN MEDOXOMIL
     Dosage: 40 MG, QD
     Route: 048
     Dates: end: 2012
  2. BENICAR [Suspect]
     Active Substance: OLMESARTAN MEDOXOMIL
     Indication: PRODUCT USED FOR UNKNOWN INDICATION
     Dosage: 40 MG, QD
     Route: 048
     Dates: end: 2010
  3. FLOMAX [Concomitant]
     Active Substance: TAMSULOSIN HYDROCHLORIDE
     Indication: PRODUCT USED FOR UNKNOWN INDICATION
     Dosage: UNK
  4. NEXIUM [Concomitant]
     Active Substance: ESOMEPRAZOLE MAGNESIUM
     Indication: PRODUCT USED FOR UNKNOWN INDICATION
     Dosage: UNK
  5. BENICAR [Suspect]
     Active Substance: OLMESARTAN MEDOXOMIL
     Dosage: 40 MG, ? TABLET, QD PRN
     Dates: start: 2010
  6. BENICAR HCT [Suspect]
     Active Substance: HYDROCHLOROTHIAZIDE\OLMESARTAN MEDOXOMIL
     Indication: PRODUCT USED FOR UNKNOWN INDICATION
     Dosage: UNK
     Route: 048
  7. QUESTRAN [Concomitant]
     Active Substance: CHOLESTYRAMINE
     Indication: PRODUCT USED FOR UNKNOWN INDICATION

REACTIONS (18)
  - Pancreatic insufficiency [Unknown]
  - Dysphonia [Unknown]
  - Protein-losing gastroenteropathy [Unknown]
  - Malabsorption [Recovered/Resolved]
  - Dysuria [Unknown]
  - Renal failure [Recovering/Resolving]
  - Gastrooesophageal reflux disease [Unknown]
  - Barrett^s oesophagus [Unknown]
  - Hypotension [Recovered/Resolved]
  - Depression [Unknown]
  - Haemorrhoids [Unknown]
  - Gastritis erosive [None]
  - Fall [Recovered/Resolved]
  - Drug administration error [Recovered/Resolved]
  - Medical device complication [None]
  - International normalised ratio increased [None]
  - Thrombosis [Unknown]
  - Syncope [Unknown]

NARRATIVE: CASE EVENT DATE: 2009
